FAERS Safety Report 17860079 (Version 1)
Quarter: 2020Q2

REPORT INFORMATION
  Report Type: Spontaneous
  Country: US (occurrence: US)
  Receive Date: 20200604
  Receipt Date: 20200604
  Transmission Date: 20200714
  Serious: Yes (Other)
  Sender: FDA-Public Use
  Company Number: None

PATIENT
  Age: 27 Year
  Sex: Female
  Weight: 176.3 kg

DRUGS (20)
  1. INSULIN GLARGINE [Concomitant]
     Active Substance: INSULIN GLARGINE
     Dates: start: 20200520
  2. MIDAZOLAM. [Concomitant]
     Active Substance: MIDAZOLAM
     Dates: start: 20200521, end: 20200521
  3. FLUCONAZOLE. [Concomitant]
     Active Substance: FLUCONAZOLE
     Dates: start: 20200526, end: 20200601
  4. MELATONIN [Concomitant]
     Active Substance: MELATONIN
     Dates: start: 20200520
  5. REMDESIVIR. [Suspect]
     Active Substance: REMDESIVIR
     Indication: COVID-19
     Route: 041
     Dates: start: 20200521, end: 20200528
  6. ENOXAPARIN [Concomitant]
     Active Substance: ENOXAPARIN
     Dates: start: 20200520
  7. METHYLPREDNISOLONE. [Concomitant]
     Active Substance: METHYLPREDNISOLONE
     Dates: start: 20200520
  8. SODIUM PHOSPHATE [Concomitant]
     Active Substance: SODIUM PHOSPHATE
     Dates: start: 20200519, end: 20200525
  9. POTASSIUM CHLORIDE. [Concomitant]
     Active Substance: POTASSIUM CHLORIDE
     Dates: start: 20200520
  10. SUCCINYLCHOLINE [Concomitant]
     Active Substance: SUCCINYLCHOLINE
     Dates: start: 20200521, end: 20200521
  11. CHOLECALCIFEROL [Concomitant]
     Active Substance: CHOLECALCIFEROL
     Dates: start: 20200520
  12. NOREPINEPHRINE. [Concomitant]
     Active Substance: NOREPINEPHRINE
     Dates: start: 20200525
  13. METOPROLOL. [Concomitant]
     Active Substance: METOPROLOL
     Dates: start: 20200522, end: 20200525
  14. INSULIN LISPRO [Concomitant]
     Active Substance: INSULIN LISPRO
     Dates: start: 20200519
  15. FENTANYL. [Concomitant]
     Active Substance: FENTANYL
     Dates: start: 20200521
  16. INSULIN REGULAR [Concomitant]
     Active Substance: INSULIN NOS
     Dates: start: 20200520
  17. ASCORBIC ACID. [Concomitant]
     Active Substance: ASCORBIC ACID
     Dates: start: 20200521
  18. CEFEPIME [Concomitant]
     Active Substance: CEFEPIME HYDROCHLORIDE
     Dates: start: 20200520, end: 20200526
  19. PANTOPRAZOLE [Concomitant]
     Active Substance: PANTOPRAZOLE
     Dates: start: 20200521
  20. PROPOFOL. [Concomitant]
     Active Substance: PROPOFOL
     Dates: start: 20200521

REACTIONS (3)
  - Acute kidney injury [None]
  - Blood creatinine increased [None]
  - Haemodialysis [None]

NARRATIVE: CASE EVENT DATE: 20200526
